FAERS Safety Report 6123620-5 (Version None)
Quarter: 2009Q1

REPORT INFORMATION
  Report Type: 
  Country: None (occurrence: None)
  Receive Date: 20090319
  Receipt Date: 20090313
  Transmission Date: 20090719
  Serious: Yes (Hospitalization)
  Sender: FDA-Public Use
  Company Number: US-KINGPHARMUSA00001-K200900296

PATIENT
  Age: 86 Year
  Sex: Male

DRUGS (8)
  1. ALTACE [Suspect]
     Indication: HYPERTENSION
     Dosage: 5 MG, BID
     Route: 048
     Dates: end: 20090114
  2. ALTACE [Suspect]
     Dosage: 5 MG, QD
     Route: 048
     Dates: start: 20090114
  3. ALDACTONE [Concomitant]
     Indication: OEDEMA
     Dosage: 25 MG, UNK
     Route: 048
  4. ALLOPURINOL [Concomitant]
     Indication: HYPERURICAEMIA
     Dosage: 300 MG, UNK
     Route: 048
     Dates: start: 20090101
  5. BELOC ZOK [Concomitant]
     Indication: HYPERTENSION
     Dosage: 47.5 MG, UNK
     Route: 049
     Dates: start: 20081201
  6. FALITHROM [Concomitant]
     Indication: ATRIAL FIBRILLATION
     Dosage: 3 MG, UNK
     Route: 048
     Dates: start: 20081201
  7. PANTOZOL                           /01263202/ [Concomitant]
     Indication: GASTROENTERITIS
     Dosage: 40 MG, UNK
     Route: 048
     Dates: start: 20081201
  8. XIPAMIDE [Concomitant]
     Indication: OEDEMA
     Dosage: 10 MG, UNK
     Route: 048
     Dates: start: 20090101, end: 20090114

REACTIONS (2)
  - TACHYARRHYTHMIA [None]
  - TACHYCARDIA [None]
